FAERS Safety Report 5173153-8 (Version None)
Quarter: 2006Q4

REPORT INFORMATION
  Report Type: 
  Country: None (occurrence: None)
  Receive Date: 20061207
  Receipt Date: 20061207
  Transmission Date: 20070319
  Serious: Yes (Hospitalization)
  Sender: FDA-Public Use
  Company Number: None

PATIENT
  Age: 84 Year
  Sex: Female
  Weight: 79.3795 kg

DRUGS (1)
  1. ZETIA [Suspect]
     Indication: BLOOD CHOLESTEROL INCREASED
     Dosage: 1 TABLET EVERY OTHER DAY PO
     Route: 048
     Dates: start: 20061124, end: 20061130

REACTIONS (6)
  - ARTHRALGIA [None]
  - BACK PAIN [None]
  - COUGH [None]
  - DYSPHONIA [None]
  - HYPERTENSION [None]
  - JOINT SWELLING [None]
